FAERS Safety Report 24680324 (Version 1)
Quarter: 2024Q4

REPORT INFORMATION
  Report Type: Spontaneous
  Country: NL (occurrence: NL)
  Receive Date: 20241129
  Receipt Date: 20241129
  Transmission Date: 20250114
  Serious: Yes (Hospitalization)
  Sender: TEVA
  Company Number: None

PATIENT
  Sex: Female
  Weight: 11 kg

DRUGS (1)
  1. VALPROIC ACID [Suspect]
     Active Substance: VALPROIC ACID
     Indication: Epilepsy
     Dosage: 1X DURING THE DAY 1 PIECE, BRAND NAME NOT SPECIFIED
     Route: 065
     Dates: start: 20230604, end: 20240328

REACTIONS (5)
  - Renal impairment [Recovered/Resolved]
  - Acidosis [Recovered/Resolved]
  - Blood potassium decreased [Recovered/Resolved]
  - Blood calcium increased [Recovered/Resolved]
  - Blood sodium decreased [Recovered/Resolved]
